FAERS Safety Report 6027909-X (Version None)
Quarter: 2008Q4

REPORT INFORMATION
  Report Type: 
  Country: None (occurrence: None)
  Receive Date: 20081230
  Receipt Date: 20081215
  Transmission Date: 20090506
  Serious: Yes (Death)
  Sender: FDA-Public Use
  Company Number: GXKR2008JP11569

PATIENT
  Age: 66 Year
  Sex: Male

DRUGS (5)
  1. ETHAMBUTOL HCL [Suspect]
     Indication: TUBERCULOSIS OF CENTRAL NERVOUS SYSTEM
     Dosage: 250 MG, Q48H, ORAL
     Route: 048
     Dates: start: 20081106, end: 20081203
  2. RIFAMPICIN [Suspect]
     Indication: TUBERCULOSIS OF CENTRAL NERVOUS SYSTEM
     Dosage: 450 MG, QW2, ORAL
     Route: 048
     Dates: end: 20081203
  3. ISONIAZID [Suspect]
     Indication: TUBERCULOSIS OF CENTRAL NERVOUS SYSTEM
     Dosage: 300 MG, Q48H, ORAL
     Route: 048
     Dates: end: 20081203
  4. PYRAZINAMIDE [Suspect]
     Indication: TUBERCULOSIS OF CENTRAL NERVOUS SYSTEM
     Dosage: 1 G, ON DAY OF DIALYSIS, ORAL
     Route: 048
     Dates: end: 20081203
  5. FAMOTIDINE [Suspect]
     Dosage: ORAL
     Route: 048
     Dates: end: 20081203

REACTIONS (2)
  - GENERAL PHYSICAL HEALTH DETERIORATION [None]
  - HEPATITIS FULMINANT [None]
